FAERS Safety Report 8593621-6 (Version None)
Quarter: 2012Q3

REPORT INFORMATION
  Report Type: 
  Country: None (occurrence: None)
  Receive Date: 20120814
  Receipt Date: 20120713
  Transmission Date: 20120928
  Serious: No
  Sender: FDA-Public Use
  Company Number: US-ASTRAZENECA-2012SE48724

PATIENT
  Age: 58 Year
  Sex: Female

DRUGS (3)
  1. CRESTOR [Suspect]
     Route: 048
  2. ZETIA [Concomitant]
  3. CRESTOR [Suspect]
     Route: 048
     Dates: start: 20080101

REACTIONS (4)
  - DRUG DOSE OMISSION [None]
  - DIABETES MELLITUS [None]
  - OFF LABEL USE [None]
  - PAIN IN EXTREMITY [None]
